FAERS Safety Report 20773736 (Version 1)
Quarter: 2022Q2

REPORT INFORMATION
  Report Type: Spontaneous
  Country: US (occurrence: None)
  Receive Date: 20220429
  Receipt Date: 20220429
  Transmission Date: 20220721
  Serious: No
  Sender: FDA-Public Use
  Company Number: None

PATIENT
  Age: 69 Year
  Sex: Female
  Weight: 106.65 kg

DRUGS (5)
  1. CLENPIQ [Suspect]
     Active Substance: ANHYDROUS CITRIC ACID\MAGNESIUM OXIDE\SODIUM PICOSULFATE
     Indication: Colonoscopy
     Dosage: OTHER QUANTITY : 2 BOTTLE;?OTHER FREQUENCY : 18 HR + 6 HR PRIOR;?
     Route: 048
     Dates: start: 20220427, end: 20220428
  2. CALCIUM [Concomitant]
     Active Substance: CALCIUM
  3. daily vitamin pill [Concomitant]
  4. MINERALS\VITAMINS [Concomitant]
     Active Substance: MINERALS\VITAMINS
  5. VITAMIN C [Concomitant]
     Active Substance: ASCORBIC ACID

REACTIONS (3)
  - Chest pain [None]
  - Blood pressure increased [None]
  - Therapeutic product effect delayed [None]

NARRATIVE: CASE EVENT DATE: 20220428
